FAERS Safety Report 10150433 (Version 5)
Quarter: 2014Q2

REPORT INFORMATION
  Report Type: Report from Study
  Country: DE (occurrence: DE)
  Receive Date: 20140502
  Receipt Date: 20140612
  Transmission Date: 20141212
  Serious: Yes (Hospitalization)
  Sender: FDA-Public Use
  Company Number: DE-INCYTE CORPORATION-2013IN002430

PATIENT
  Age: 86 Year
  Sex: Female
  Weight: 60 kg

DRUGS (20)
  1. INCB018424 [Suspect]
     Indication: MYELOFIBROSIS
     Dosage: 15 MG, QD
     Route: 048
     Dates: start: 20130703, end: 20130827
  2. INCB018424 [Suspect]
     Dosage: 15 MG, QOD
     Route: 048
     Dates: start: 20130828, end: 20130924
  3. INCB018424 [Suspect]
     Dosage: 5 MG, BID
     Route: 048
     Dates: start: 20131120, end: 20131125
  4. INCB018424 [Suspect]
     Dosage: 5 MG, QOD
     Route: 048
     Dates: start: 20131126, end: 20140102
  5. INCB018424 [Suspect]
     Dosage: 5 MG, BID
     Route: 048
     Dates: start: 20140103, end: 20140218
  6. INCB018424 [Suspect]
     Dosage: 5 MG, TID
     Route: 048
     Dates: start: 20140219, end: 20140223
  7. STILNOX [Concomitant]
     Dosage: UNK MG, UNK
     Dates: start: 20130301
  8. REKAWAN [Concomitant]
     Dosage: UNK
     Dates: start: 20130826
  9. METAMIZOLE [Concomitant]
     Dosage: UNK
     Dates: start: 20090617
  10. DELIX [Concomitant]
     Dosage: UNK
  11. DELIX [Concomitant]
     Dosage: 1 DF, TID
  12. FUROSEMIDE [Concomitant]
     Dosage: UNK
     Dates: start: 20130826
  13. EUTHYROX [Concomitant]
     Dosage: UNK MG, UNK
     Dates: start: 20111017
  14. ALLOPURINOL [Concomitant]
     Dosage: UNK
  15. ALLOPURINOL [Concomitant]
     Dosage: 300 MG, PER DAY
     Dates: end: 20111017
  16. ALLOPURINOL [Concomitant]
     Dosage: 7.5 MG, UNK
  17. KREON                              /00014701/ [Concomitant]
     Dosage: UNK
  18. NOVAMINSULFON [Concomitant]
     Dosage: UNK
     Dates: start: 20130301
  19. RAMILICH [Concomitant]
     Dosage: UNK
  20. RAMILICH [Concomitant]
     Dosage: 5 MG, UNK

REACTIONS (9)
  - Haemoglobin decreased [Recovering/Resolving]
  - Platelet count decreased [Recovering/Resolving]
  - Anaemia [Unknown]
  - Oedema [Recovering/Resolving]
  - Gastritis erosive [Recovering/Resolving]
  - Dyspnoea [Recovering/Resolving]
  - Infection [Recovering/Resolving]
  - Oesophageal candidiasis [Unknown]
  - Oesophageal stenosis [Unknown]
